FAERS Safety Report 20663054 (Version 2)
Quarter: 2022Q2

REPORT INFORMATION
  Report Type: Spontaneous
  Country: US (occurrence: US)
  Receive Date: 20220401
  Receipt Date: 20220405
  Transmission Date: 20220721
  Serious: No
  Sender: FDA-Public Use
  Company Number: US-TEVA-2022-US-2014942

PATIENT
  Age: 64 Year
  Sex: Male

DRUGS (4)
  1. DIAZEPAM [Suspect]
     Active Substance: DIAZEPAM
     Indication: Muscle spasms
     Route: 065
     Dates: start: 2019
  2. DIAZEPAM [Suspect]
     Active Substance: DIAZEPAM
     Route: 065
  3. DIAZEPAM [Suspect]
     Active Substance: DIAZEPAM
     Route: 065
  4. DIAZEPAM [Suspect]
     Active Substance: DIAZEPAM
     Route: 065
     Dates: start: 202202

REACTIONS (2)
  - Heart rate increased [Unknown]
  - Drug ineffective [Unknown]
